FAERS Safety Report 9105278 (Version 1)
Quarter: 2013Q1

REPORT INFORMATION
  Report Type: Report from Study
  Country: CA (occurrence: CA)
  Receive Date: 20130220
  Receipt Date: 20130220
  Transmission Date: 20140127
  Serious: Yes (Hospitalization)
  Sender: FDA-Public Use
  Company Number: CA-GLAXOSMITHKLINE-A1012554A

PATIENT
  Age: 79 Year
  Sex: Male
  Weight: 103.9 kg

DRUGS (26)
  1. CHLORAMBUCIL [Suspect]
     Indication: CHRONIC LYMPHOCYTIC LEUKAEMIA
     Dosage: 52MG CYCLIC
     Route: 048
     Dates: start: 20120523
  2. INVESTIGATIONAL STUDY DRUG [Suspect]
     Indication: CHRONIC LYMPHOCYTIC LEUKAEMIA
     Dosage: 1000MG CYCLIC
     Route: 042
     Dates: start: 20120523
  3. ACETAMINOPHEN [Suspect]
     Indication: PRODUCT USED FOR UNKNOWN INDICATION
     Dosage: 975MG PER DAY
     Route: 048
     Dates: start: 20120523, end: 20120529
  4. PLAVIX [Concomitant]
     Route: 048
     Dates: start: 20001212
  5. METFORMIN HYDROCHLORIDE [Concomitant]
     Indication: DIABETES MELLITUS
     Route: 048
     Dates: start: 20001202
  6. GLYBURIDE [Concomitant]
     Indication: DIABETES MELLITUS
     Route: 048
     Dates: start: 20001202
  7. HUMAN ISOPHANE INSULIN [Concomitant]
     Indication: DIABETES MELLITUS
     Dates: start: 20120404
  8. XALATAN [Concomitant]
     Indication: GLAUCOMA
     Route: 047
     Dates: start: 20030517
  9. SYMBICORT [Concomitant]
     Dates: start: 20060918
  10. BETADERM [Concomitant]
     Indication: RASH
     Dates: start: 20120315
  11. PREDNISONE [Concomitant]
     Dosage: 60MG PER DAY
     Dates: start: 20110915
  12. FOLIC ACID [Concomitant]
     Dates: start: 20120206
  13. LOSEC [Concomitant]
     Route: 048
     Dates: start: 20110913
  14. GLUCOBAY [Concomitant]
     Dosage: 50MG THREE TIMES PER DAY
     Dates: start: 20070503
  15. RAMIPRIL [Concomitant]
     Indication: CORONARY ARTERY DISEASE
     Dosage: 10MG PER DAY
     Route: 048
     Dates: start: 20010406
  16. LASIX [Concomitant]
     Dosage: 10MG ALTERNATE DAYS
     Route: 048
     Dates: start: 20110826
  17. ACTOS [Concomitant]
     Indication: DIABETES MELLITUS
     Route: 048
     Dates: start: 20070731
  18. AVAPRO [Concomitant]
     Indication: HYPERTENSION
     Route: 048
     Dates: start: 20071010
  19. LIPITOR [Concomitant]
     Indication: HYPERLIPIDAEMIA
     Dates: start: 20000601
  20. ZOPICLONE [Concomitant]
     Indication: SEDATION
     Dates: start: 20120517
  21. ALLOPURINOL [Concomitant]
     Indication: PROPHYLAXIS
     Dosage: 300MG PER DAY
     Route: 048
  22. ABREVA [Concomitant]
     Indication: ORAL HERPES
     Dates: start: 20120529, end: 20120629
  23. COLACE [Concomitant]
     Indication: CONSTIPATION
     Route: 048
     Dates: start: 20120611
  24. LAXADIN [Concomitant]
     Indication: CONSTIPATION
     Dosage: 17MG AS REQUIRED
     Dates: start: 20120627
  25. SENNA [Concomitant]
     Indication: CONSTIPATION
     Route: 048
  26. SULFATRIM [Concomitant]
     Route: 048
     Dates: start: 20120206, end: 20120515

REACTIONS (2)
  - Pneumonia aspiration [Recovered/Resolved]
  - Influenza [Not Recovered/Not Resolved]
